FAERS Safety Report 25414097 (Version 1)
Quarter: 2025Q2

REPORT INFORMATION
  Report Type: Spontaneous
  Country: CN (occurrence: CN)
  Receive Date: 20250609
  Receipt Date: 20250609
  Transmission Date: 20250716
  Serious: Yes (Other)
  Sender: PURDUE
  Company Number: CN-PURDUE-USA-2025-0317949

PATIENT
  Age: 3 Decade
  Sex: Female

DRUGS (2)
  1. SCOPOLAMINE [Suspect]
     Active Substance: SCOPOLAMINE
     Indication: Product used for unknown indication
     Route: 065
  2. PILOCARPINE [Suspect]
     Active Substance: PILOCARPINE
     Indication: Symptomatic treatment
     Route: 047

REACTIONS (3)
  - Systemic toxicity [Recovered/Resolved]
  - Anisocoria [Recovered/Resolved]
  - Accidental exposure to product [Recovered/Resolved]
